FAERS Safety Report 6374162-3 (Version None)
Quarter: 2009Q3

REPORT INFORMATION
  Report Type: 
  Country: None (occurrence: None)
  Receive Date: 20090924
  Receipt Date: 20090617
  Transmission Date: 20100115
  Serious: No
  Sender: FDA-Public Use
  Company Number: US-ASTRAZENECA-2009UW15832

PATIENT
  Age: 34 Year
  Sex: Male

DRUGS (3)
  1. SEROQUEL [Suspect]
     Dosage: 50 MG
     Route: 048
  2. AMBIEN [Concomitant]
  3. PRESTIQUE [Concomitant]

REACTIONS (1)
  - NIGHT SWEATS [None]
